FAERS Safety Report 4398205-1 (Version None)
Quarter: 2004Q3

REPORT INFORMATION
  Report Type: 
  Country: None (occurrence: None)
  Receive Date: 20040714
  Receipt Date: 20040714
  Transmission Date: 20050211
  Serious: Yes (Hospitalization)
  Sender: FDA-Public Use
  Company Number: None

PATIENT
  Age: 56 Year
  Sex: Female
  Weight: 77.6 kg

DRUGS (12)
  1. ASPIRIN [Suspect]
     Dosage: 81 MG PO DAILY
     Route: 048
  2. VIOXX [Suspect]
     Indication: PAIN
     Dosage: 50 MG QD PRN
  3. PERCOCET [Concomitant]
  4. CATAPRES [Concomitant]
  5. ERYTHROPOETIN [Concomitant]
  6. HECTOROL [Concomitant]
  7. PHOSLO [Concomitant]
  8. NOVOLIN 70/30 [Concomitant]
  9. DIALYVITE [Concomitant]
  10. MINOXIDIL [Concomitant]
  11. METOPROLOL [Concomitant]
  12. QUININE [Concomitant]

REACTIONS (5)
  - ABDOMINAL PAIN [None]
  - CHEST PAIN [None]
  - FLANK PAIN [None]
  - FLATULENCE [None]
  - HAEMATEMESIS [None]
